FAERS Safety Report 8879707 (Version 2)
Quarter: 2013Q1

REPORT INFORMATION
  Report Type: Report from Study
  Country: US (occurrence: US)
  Receive Date: 20121031
  Receipt Date: 20130201
  Transmission Date: 20140127
  Serious: Yes (Hospitalization)
  Sender: FDA-Public Use
  Company Number: US-US-EMD SERONO, INC.-7170407

PATIENT
  Age: 60 Year
  Sex: Male

DRUGS (2)
  1. REBIF [Suspect]
     Indication: MULTIPLE SCLEROSIS
     Route: 058
     Dates: start: 20090916
  2. TYLENOL [Concomitant]
     Indication: PREMEDICATION

REACTIONS (3)
  - Staphylococcal infection [Recovering/Resolving]
  - Fall [Recovering/Resolving]
  - Multiple sclerosis [Not Recovered/Not Resolved]
